FAERS Safety Report 24244404 (Version 1)
Quarter: 2024Q3

REPORT INFORMATION
  Report Type: Report from Study
  Country: CA (occurrence: CA)
  Receive Date: 20240823
  Receipt Date: 20240823
  Transmission Date: 20241017
  Serious: Yes (Life-Threatening, Hospitalization)
  Sender: AMGEN
  Company Number: CA-AMGEN-CANSL2023172216

PATIENT
  Age: 74 Year
  Sex: Female

DRUGS (3)
  1. AVSOLA [Suspect]
     Active Substance: INFLIXIMAB-AXXQ
     Indication: Crohn^s disease
     Dosage: 10 MILLIGRAM/KILOGRAM, Q4WK
     Route: 065
     Dates: start: 20220124
  2. AVSOLA [Suspect]
     Active Substance: INFLIXIMAB-AXXQ
     Dosage: 10 MILLIGRAM/KILOGRAM, Q8WK
     Route: 065
  3. AVSOLA [Suspect]
     Active Substance: INFLIXIMAB-AXXQ
     Dosage: 10 MILLIGRAM/KILOGRAM, Q8WK
     Route: 065
     Dates: end: 20240610

REACTIONS (11)
  - Pyelonephritis [Unknown]
  - Urinary tract infection [Unknown]
  - Hyperkalaemia [Unknown]
  - Myalgia [Unknown]
  - Off label use [Unknown]
  - Muscle spasms [Unknown]
  - Decreased appetite [Unknown]
  - Nausea [Unknown]
  - Pyrexia [Unknown]
  - Abdominal pain [Unknown]
  - Diarrhoea [Unknown]

NARRATIVE: CASE EVENT DATE: 20220101
